FAERS Safety Report 15557908 (Version 2)
Quarter: 2018Q4

REPORT INFORMATION
  Report Type: Spontaneous
  Country: BR (occurrence: BR)
  Receive Date: 20181027
  Receipt Date: 20181030
  Transmission Date: 20190205
  Serious: Yes (Other)
  Sender: FDA-Public Use
  Company Number: BR-009507513-1810BRA009794

PATIENT
  Age: 50 Year
  Sex: Female

DRUGS (3)
  1. NASONEX [Suspect]
     Active Substance: MOMETASONE FUROATE
     Dosage: 1 SPRAY IN EACH NOSTRIL, AT THE MORNING AND AT NIGHT
     Dates: start: 20181015
  2. NASONEX [Suspect]
     Active Substance: MOMETASONE FUROATE
     Indication: APNOEA
     Dosage: UNK
     Route: 045
     Dates: start: 2009
  3. NASONEX [Suspect]
     Active Substance: MOMETASONE FUROATE
     Indication: NASAL OBSTRUCTION
     Dosage: UNK
     Route: 045
     Dates: start: 2011

REACTIONS (9)
  - Product use in unapproved indication [Unknown]
  - Product odour abnormal [Unknown]
  - Uvulopalatopharyngoplasty [Unknown]
  - Weight fluctuation [Unknown]
  - Product dose omission [Unknown]
  - Product use in unapproved indication [Unknown]
  - Product use in unapproved indication [Unknown]
  - Nasal septal operation [Unknown]
  - Nasal obstruction [Unknown]

NARRATIVE: CASE EVENT DATE: 2009
